FAERS Safety Report 19103222 (Version 1)
Quarter: 2021Q2

REPORT INFORMATION
  Report Type: Spontaneous
  Country: US (occurrence: US)
  Receive Date: 20210407
  Receipt Date: 20210407
  Transmission Date: 20210717
  Serious: Yes (Hospitalization, Other)
  Sender: FDA-Public Use
  Company Number: US-HIKMA PHARMACEUTICALS USA INC.-US-H14001-21-01597

PATIENT
  Age: 21 Year
  Sex: Male
  Weight: 124.6 kg

DRUGS (13)
  1. ACETAMINOPHEN. [Concomitant]
     Active Substance: ACETAMINOPHEN
     Indication: PRODUCT USED FOR UNKNOWN INDICATION
     Dosage: UNKNOWN
     Route: 065
     Dates: start: 20190531, end: 20190531
  2. LEUCOVORIN. [Suspect]
     Active Substance: LEUCOVORIN
     Indication: LEUKAEMIA
     Route: 042
     Dates: start: 20190420
  3. VINCRISTINE [Suspect]
     Active Substance: VINCRISTINE
     Indication: LEUKAEMIA
     Route: 042
     Dates: start: 20190418
  4. METHOTREXATE. [Suspect]
     Active Substance: METHOTREXATE
     Indication: LEUKAEMIA
     Dosage: 12,450 MG ? 12,600 MG
     Route: 042
     Dates: start: 20190418
  5. MERCAPTOPURINE. [Suspect]
     Active Substance: MERCAPTOPURINE
     Indication: LEUKAEMIA
     Dosage: 50 MG M?R, 75 MG F?S
     Route: 048
     Dates: start: 20190418, end: 20190603
  6. TRIMETHOPRIM SULFAMETHOXASOZOLE [Concomitant]
     Indication: PRODUCT USED FOR UNKNOWN INDICATION
     Dosage: UNKNOWN
     Route: 065
     Dates: start: 20190523, end: 20190529
  7. MERCAPTOPURINE. [Suspect]
     Active Substance: MERCAPTOPURINE
     Dosage: 50 MG M?R, 75 MG F?S
     Route: 048
     Dates: start: 20190603
  8. METHOTREXATE. [Suspect]
     Active Substance: METHOTREXATE
     Indication: LEUKAEMIA
     Route: 037
     Dates: start: 20190418
  9. INCB018424 [Suspect]
     Active Substance: RUXOLITINIB
     Indication: LEUKAEMIA
     Route: 048
     Dates: start: 20190418
  10. LORAZEPAM. [Concomitant]
     Active Substance: LORAZEPAM
     Indication: PRODUCT USED FOR UNKNOWN INDICATION
     Dosage: UNKNOWN
     Route: 065
     Dates: start: 20190531, end: 20190531
  11. CEFTRIAXONE. [Concomitant]
     Active Substance: CEFTRIAXONE
     Indication: PRODUCT USED FOR UNKNOWN INDICATION
     Dosage: UNKNOWN
     Route: 065
     Dates: start: 20190531, end: 20190531
  12. PIPERACILLIN/TAZOBACTAM [Concomitant]
     Active Substance: PIPERACILLIN SODIUM\TAZOBACTAM SODIUM
     Indication: PRODUCT USED FOR UNKNOWN INDICATION
     Dosage: UNKNOWN
     Route: 065
     Dates: start: 20190530, end: 20190531
  13. ONDANSETRON [Concomitant]
     Active Substance: ONDANSETRON
     Indication: PRODUCT USED FOR UNKNOWN INDICATION
     Dosage: UNKNOWN
     Route: 065
     Dates: start: 20190531, end: 20190531

REACTIONS (8)
  - Underdose [Unknown]
  - Metapneumovirus infection [Recovered/Resolved]
  - Nausea [Unknown]
  - Dyspnoea [Unknown]
  - Vomiting [Unknown]
  - Electrocardiogram QT prolonged [Unknown]
  - Pyrexia [Unknown]
  - Anaemia [Recovered/Resolved]

NARRATIVE: CASE EVENT DATE: 20190530
